FAERS Safety Report 5089716-4 (Version None)
Quarter: 2006Q3

REPORT INFORMATION
  Report Type: 
  Country: None (occurrence: None)
  Receive Date: 20060823
  Receipt Date: 20060815
  Transmission Date: 20061208
  Serious: Yes (Hospitalization)
  Sender: FDA-Public Use
  Company Number: 163-21880-06080762

PATIENT
  Age: 75 Year
  Sex: Male

DRUGS (1)
  1. REVLIMID [Suspect]
     Indication: MULTIPLE MYELOMA
     Dosage: 2 IN 1 D, ORAL
     Route: 048
     Dates: start: 20060707

REACTIONS (3)
  - CATHETER RELATED INFECTION [None]
  - DEVICE RELATED INFECTION [None]
  - PACEMAKER COMPLICATION [None]
